FAERS Safety Report 19919980 (Version 2)
Quarter: 2021Q4

REPORT INFORMATION
  Report Type: Spontaneous
  Country: US (occurrence: None)
  Receive Date: 20211005
  Receipt Date: 20211116
  Transmission Date: 20220303
  Serious: No
  Sender: FDA-Public Use
  Company Number: 2021A748126

PATIENT
  Sex: Female

DRUGS (1)
  1. BUDESONIDE\FORMOTEROL\GLYCOPYRRONIUM [Suspect]
     Active Substance: BUDESONIDE\FORMOTEROL\GLYCOPYRRONIUM
     Dosage: BREZTRI, 160/7.2/5.0MCG
     Route: 055
     Dates: start: 2021

REACTIONS (4)
  - Dyspnoea [Unknown]
  - Device defective [Unknown]
  - Device delivery system issue [Unknown]
  - Wrong technique in device usage process [Unknown]
